FAERS Safety Report 8499176-9 (Version None)
Quarter: 2012Q2

REPORT INFORMATION
  Report Type: 
  Country: None (occurrence: None)
  Receive Date: 20120627
  Receipt Date: 20120616
  Transmission Date: 20120825
  Serious: Yes (Other)
  Sender: FDA-Public Use
  Company Number: 2012AP001855

PATIENT
  Age: 69 Year
  Sex: Female

DRUGS (4)
  1. LEVOTHYROXINE SODIUM [Concomitant]
  2. CALCIUM CARBONATE [Concomitant]
  3. ALENDRONATE SODIUM [Suspect]
     Indication: OSTEOPOROSIS
     Dosage: UNKNOWN
  4. ERGOCALCIFEROL [Concomitant]

REACTIONS (2)
  - ATYPICAL FEMUR FRACTURE [None]
  - PAIN IN EXTREMITY [None]
